FAERS Safety Report 7415967-7 (Version None)
Quarter: 2011Q2

REPORT INFORMATION
  Report Type: 
  Country: None (occurrence: None)
  Receive Date: 20110414
  Receipt Date: 20091208
  Transmission Date: 20111010
  Serious: Yes (Other)
  Sender: FDA-Public Use
  Company Number: PHHY2009DE68299

PATIENT
  Sex: Female

DRUGS (1)
  1. EXTAVIA [Suspect]
     Indication: MULTIPLE SCLEROSIS
     Dosage: 250 UG, QOD
     Route: 058

REACTIONS (10)
  - DRUG INTOLERANCE [None]
  - APATHY [None]
  - INFLUENZA LIKE ILLNESS [None]
  - DISTURBANCE IN ATTENTION [None]
  - HYPOTONIA [None]
  - HEADACHE [None]
  - INJECTION SITE PRURITUS [None]
  - INJECTION SITE ERYTHEMA [None]
  - LISTLESS [None]
  - BACK PAIN [None]
